FAERS Safety Report 7021446-1 (Version None)
Quarter: 2010Q3

REPORT INFORMATION
  Report Type: 
  Country: None (occurrence: None)
  Receive Date: 20100929
  Receipt Date: 20100920
  Transmission Date: 20110219
  Serious: Yes (Other)
  Sender: FDA-Public Use
  Company Number: US-ELI_LILLY_AND_COMPANY-US201007001560

PATIENT
  Sex: Female

DRUGS (3)
  1. HUMULIN R [Suspect]
     Indication: DIABETES MELLITUS
     Dosage: 170 U, DAILY (1/D)
     Route: 058
  2. METFORMIN [Concomitant]
     Dosage: 705 MG, DAILY (1/D)
  3. CORTICOSTEROIDS [Concomitant]

REACTIONS (4)
  - ADRENAL INSUFFICIENCY [None]
  - BLOOD GLUCOSE INCREASED [None]
  - DRUG DOSE OMISSION [None]
  - RETCHING [None]
